FAERS Safety Report 17546300 (Version 2)
Quarter: 2020Q2

REPORT INFORMATION
  Report Type: Not Available
  Country: US (occurrence: US)
  Receive Date: 20200316
  Receipt Date: 20200423
  Transmission Date: 20200713
  Serious: No
  Sender: FDA-Public Use
  Company Number: US-NEUROCRINE BIOSCIENCES INC.-2020NBI00756

PATIENT
  Sex: Female

DRUGS (13)
  1. CLONIDINE. [Concomitant]
     Active Substance: CLONIDINE
  2. GABAPENTIN. [Concomitant]
     Active Substance: GABAPENTIN
  3. INGREZZA [Suspect]
     Active Substance: VALBENAZINE
     Indication: TARDIVE DYSKINESIA
     Route: 048
     Dates: end: 20200211
  4. IRON [Concomitant]
     Active Substance: IRON
  5. MIRENA [Concomitant]
     Active Substance: LEVONORGESTREL
  6. BUSPIRONE [Concomitant]
     Active Substance: BUSPIRONE HYDROCHLORIDE
  7. VRAYLAR [Concomitant]
     Active Substance: CARIPRAZINE
  8. FENOFIBRATE. [Concomitant]
     Active Substance: FENOFIBRATE
  9. LORAZEPAM. [Concomitant]
     Active Substance: LORAZEPAM
  10. METOPROLOL. [Concomitant]
     Active Substance: METOPROLOL
  11. OMEPRAZOLE. [Concomitant]
     Active Substance: OMEPRAZOLE
  12. TRINTELLIX [Concomitant]
     Active Substance: VORTIOXETINE HYDROBROMIDE
  13. CARAFATE [Concomitant]
     Active Substance: SUCRALFATE

REACTIONS (2)
  - Akathisia [Recovering/Resolving]
  - Fatigue [Recovered/Resolved]
